FAERS Safety Report 10202023 (Version 1)
Quarter: 2014Q2

REPORT INFORMATION
  Report Type: Spontaneous
  Country: GB (occurrence: GB)
  Receive Date: 20140528
  Receipt Date: 20140528
  Transmission Date: 20141212
  Serious: Yes (Disabling)
  Sender: FDA-Public Use
  Company Number: GB-BRISTOL-MYERS SQUIBB COMPANY-20774030

PATIENT
  Age: 66 Year
  Sex: Male
  Weight: 93 kg

DRUGS (9)
  1. DAPAGLIFLOZIN [Suspect]
  2. CITALOPRAM [Concomitant]
     Dates: start: 20140206, end: 20140502
  3. GLICLAZIDE [Concomitant]
     Dates: start: 20140206, end: 20140502
  4. LANSOPRAZOLE [Concomitant]
     Dates: start: 20140206, end: 20140502
  5. LANTUS [Concomitant]
     Dates: start: 20140206, end: 20140407
  6. RAMIPRIL [Concomitant]
     Dates: start: 20140206, end: 20140306
  7. TIMOLOL [Concomitant]
     Dates: start: 20140206, end: 20140502
  8. PRAVASTATIN SODIUM [Concomitant]
     Dates: start: 20140206, end: 20140502
  9. SILDENAFIL [Concomitant]
     Dates: start: 20140206, end: 20140407

REACTIONS (4)
  - Nocturia [Recovered/Resolved]
  - Night sweats [Recovered/Resolved]
  - Dry mouth [Recovered/Resolved]
  - Malaise [Recovered/Resolved]
